FAERS Safety Report 19168022 (Version 1)
Quarter: 2021Q2

REPORT INFORMATION
  Report Type: Spontaneous
  Country: US (occurrence: US)
  Receive Date: 20210421
  Receipt Date: 20210421
  Transmission Date: 20210717
  Serious: No
  Sender: FDA-Public Use
  Company Number: None

PATIENT
  Age: 56 Year
  Sex: Female
  Weight: 57.61 kg

DRUGS (2)
  1. LAMOTRIGINE 100MG [Suspect]
     Active Substance: LAMOTRIGINE
  2. GABAPENTIN 300 [Suspect]
     Active Substance: GABAPENTIN

REACTIONS (2)
  - Urticaria [None]
  - Product substitution issue [None]

NARRATIVE: CASE EVENT DATE: 20210410
